FAERS Safety Report 13877962 (Version 1)
Quarter: 2017Q3

REPORT INFORMATION
  Report Type: Spontaneous
  Country: US (occurrence: US)
  Receive Date: 20170817
  Receipt Date: 20170817
  Transmission Date: 20171127
  Serious: No
  Sender: FDA-Public Use
  Company Number: GXBR2017US001346

PATIENT
  Age: 37 Year
  Sex: Female
  Weight: 142.4 kg

DRUGS (3)
  1. CHOLESTYRAMINE FOR ORAL SUSPENSION USP [Suspect]
     Active Substance: CHOLESTYRAMINE
     Indication: DYSPEPSIA
  2. CHOLESTYRAMINE FOR ORAL SUSPENSION USP [Suspect]
     Active Substance: CHOLESTYRAMINE
     Indication: VOMITING
     Dosage: 1 PACKETFUL MIXED IN WATER AT NIGHT
     Route: 048
     Dates: start: 20170403
  3. CHOLESTYRAMINE FOR ORAL SUSPENSION USP [Suspect]
     Active Substance: CHOLESTYRAMINE
     Indication: REFLUX GASTRITIS

REACTIONS (5)
  - Dysgeusia [Not Recovered/Not Resolved]
  - Expired product administered [Unknown]
  - Abdominal discomfort [Not Recovered/Not Resolved]
  - Diarrhoea [Not Recovered/Not Resolved]
  - Eructation [Not Recovered/Not Resolved]

NARRATIVE: CASE EVENT DATE: 20170404
